FAERS Safety Report 4796126-3 (Version None)
Quarter: 2005Q4

REPORT INFORMATION
  Report Type: 
  Country: None (occurrence: None)
  Receive Date: 20051007
  Receipt Date: 20050927
  Transmission Date: 20060501
  Serious: Yes (Hospitalization)
  Sender: FDA-Public Use
  Company Number: HQWYE735829SEP05

PATIENT
  Sex: Male

DRUGS (2)
  1. PROTONIX [Suspect]
     Indication: GASTROINTESTINAL ULCER
     Dosage: 40 MG 1X PER 1 DAY, INTRAVENOUS
     Route: 042
     Dates: start: 20050915, end: 20050923
  2. ENOXAPARIN SODIUM (HEPARIN-FRACTION, SODIUM SLAT) [Concomitant]

REACTIONS (5)
  - DUODENAL POLYP [None]
  - GASTROINTESTINAL HAEMORRHAGE [None]
  - HAEMATOCRIT DECREASED [None]
  - HAEMOGLOBIN DECREASED [None]
  - POST PROCEDURAL COMPLICATION [None]
